FAERS Safety Report 24288158 (Version 1)
Quarter: 2024Q3

REPORT INFORMATION
  Report Type: Report from Study
  Country: CA (occurrence: CA)
  Receive Date: 20240905
  Receipt Date: 20240905
  Transmission Date: 20241017
  Serious: Yes (Death, Other)
  Sender: SANDOZ
  Company Number: CA-002147023-NVSC2022CA170928

PATIENT
  Sex: Female

DRUGS (5)
  1. PIRFENIDONE [Suspect]
     Active Substance: PIRFENIDONE
     Dosage: 267 MG
     Route: 048
     Dates: start: 20220719
  2. PIRFENIDONE [Suspect]
     Active Substance: PIRFENIDONE
     Dosage: TID (1 TABLET 3 TIMES A DAY FOR 1ST WEEK).
     Route: 048
     Dates: start: 20220719
  3. PIRFENIDONE [Suspect]
     Active Substance: PIRFENIDONE
     Dosage: TID2SDO (2 TABLETS 3 TIMES A DAY)
     Route: 048
     Dates: start: 20220726
  4. PIRFENIDONE [Suspect]
     Active Substance: PIRFENIDONE
     Dosage: TID3SDO (3 TABLETS 3 TIMES A DAY.)
     Route: 048
     Dates: start: 20220803
  5. PIRFENIDONE [Suspect]
     Active Substance: PIRFENIDONE
     Indication: Pulmonary fibrosis
     Dosage: UNK
     Route: 048

REACTIONS (6)
  - Death [Fatal]
  - Malaise [Unknown]
  - Forced vital capacity decreased [Unknown]
  - Headache [Recovered/Resolved]
  - Asthenia [Unknown]
  - Nausea [Recovered/Resolved]
